FAERS Safety Report 13134920 (Version 2)
Quarter: 2017Q1

REPORT INFORMATION
  Report Type: Report from Study
  Country: CA (occurrence: CA)
  Receive Date: 20170120
  Receipt Date: 20170203
  Transmission Date: 20170428
  Serious: Yes (Other)
  Sender: FDA-Public Use
  Company Number: CA-TAKEDA-2017TUS001134

PATIENT
  Age: 31 Year
  Sex: Female

DRUGS (1)
  1. VEDOLIZUMAB [Suspect]
     Active Substance: VEDOLIZUMAB
     Indication: COLITIS ULCERATIVE
     Dosage: 300 MG, Q8WEEKS
     Route: 042
     Dates: start: 20160919

REACTIONS (1)
  - Uveitis [Recovering/Resolving]

NARRATIVE: CASE EVENT DATE: 20161231
